FAERS Safety Report 10790257 (Version 5)
Quarter: 2020Q4

REPORT INFORMATION
  Report Type: Spontaneous
  Country: US (occurrence: US)
  Receive Date: 20150212
  Receipt Date: 20201215
  Transmission Date: 20210113
  Serious: Yes (Hospitalization, Other)
  Sender: FDA-Public Use
  Company Number: US-PFIZER INC-2015055485

PATIENT
  Age: 38 Year
  Sex: Male
  Weight: 100 kg

DRUGS (2)
  1. DILANTIN [Suspect]
     Active Substance: PHENYTOIN
     Indication: SEIZURE
     Dosage: 500 MG, DAILY (5 CAPSULES NIGHTLY)
     Route: 048
     Dates: start: 1980
  2. PHENOBARBITAL. [Suspect]
     Active Substance: PHENOBARBITAL
     Indication: SEIZURE
     Dosage: UNK

REACTIONS (8)
  - Wrist fracture [Not Recovered/Not Resolved]
  - Nerve injury [Recovering/Resolving]
  - Road traffic accident [Recovered/Resolved with Sequelae]
  - Back injury [Recovering/Resolving]
  - Fall [Recovered/Resolved with Sequelae]
  - Drug ineffective [Unknown]
  - Limb injury [Recovering/Resolving]
  - Back pain [Recovering/Resolving]

NARRATIVE: CASE EVENT DATE: 20120314
